FAERS Safety Report 20537910 (Version 1)
Quarter: 2022Q1

REPORT INFORMATION
  Report Type: Spontaneous
  Country: US (occurrence: US)
  Receive Date: 20220302
  Receipt Date: 20220302
  Transmission Date: 20220424
  Serious: No
  Sender: FDA-Public Use
  Company Number: US-PFIZER INC-202200298720

PATIENT
  Age: 63 Year
  Sex: Female

DRUGS (8)
  1. VFEND [Suspect]
     Active Substance: VORICONAZOLE
     Dosage: 200 MG, 2X/DAY (EVERY 12 HOURS (1:30 IN THE MORNING AND 1:30 IN THE AFTERNOON)
  2. TAGAMET [Concomitant]
     Active Substance: CIMETIDINE
     Dosage: 200 MG
  3. CORICIDIN HBP COLD AND FLU [Concomitant]
     Active Substance: ACETAMINOPHEN\CHLORPHENIRAMINE MALEATE
     Dosage: 2 MG
  4. VITAMIN D3 [Concomitant]
     Active Substance: CHOLECALCIFEROL
     Dosage: UNK
  5. TUMS [Concomitant]
     Active Substance: CALCIUM CARBONATE
     Dosage: UNK
  6. SIMETHICONE (DIMETHICONE) [Concomitant]
     Active Substance: DIMETHICONE
     Dosage: UNK
  7. CRESTOR [Concomitant]
     Active Substance: ROSUVASTATIN CALCIUM
     Dosage: UNK
  8. TAMIFLU [Concomitant]
     Active Substance: OSELTAMIVIR PHOSPHATE
     Dosage: UNK

REACTIONS (9)
  - Intentional product misuse [Unknown]
  - Product administration error [Unknown]
  - Sinus headache [Not Recovered/Not Resolved]
  - Vision blurred [Unknown]
  - Sensory disturbance [Unknown]
  - Hypoaesthesia oral [Recovering/Resolving]
  - Dry mouth [Unknown]
  - Lip dry [Unknown]
  - Dysgeusia [Unknown]
